FAERS Safety Report 18354328 (Version 1)
Quarter: 2020Q4

REPORT INFORMATION
  Report Type: Spontaneous
  Country: US (occurrence: US)
  Receive Date: 20201006
  Receipt Date: 20201006
  Transmission Date: 20210114
  Serious: Yes (Other)
  Sender: FDA-Public Use
  Company Number: None

PATIENT
  Age: 60 Year
  Sex: Female

DRUGS (6)
  1. PROMETHAZINE 25MG [Concomitant]
  2. TACROLIMUS. [Suspect]
     Active Substance: TACROLIMUS
     Indication: LIVER TRANSPLANT
     Route: 048
  3. SULFAMETH/TRIMETHOPRIM DS [Concomitant]
  4. METOPROLOL ER 25MG [Concomitant]
  5. NYSTOP POWDER [Concomitant]
  6. UREA CREAM [Concomitant]
     Active Substance: UREA

REACTIONS (2)
  - Stomatitis [None]
  - Glossodynia [None]

NARRATIVE: CASE EVENT DATE: 20201006
